FAERS Safety Report 5843099-8 (Version None)
Quarter: 2008Q3

REPORT INFORMATION
  Report Type: 
  Country: None (occurrence: None)
  Receive Date: 20080813
  Receipt Date: 20080805
  Transmission Date: 20090109
  Serious: Yes (Death, Other)
  Sender: FDA-Public Use
  Company Number: CA-JNJFOC-20080405241

PATIENT
  Sex: Female
  Weight: 79 kg

DRUGS (10)
  1. REMICADE [Suspect]
     Route: 042
  2. REMICADE [Suspect]
     Indication: RHEUMATOID ARTHRITIS
     Route: 042
  3. METHOTREXATE [Concomitant]
     Indication: RHEUMATOID ARTHRITIS
     Route: 048
  4. ARTHROTEC [Concomitant]
     Dosage: 3 YEARS
     Route: 048
  5. FOLIC ACID [Concomitant]
     Dosage: 3 YEARS
     Route: 048
  6. NORVASC [Concomitant]
     Dosage: 8 YEARS
     Route: 048
  7. ALTACE [Concomitant]
     Dosage: 8 YEARS
     Route: 048
  8. SIMVASTATIN [Concomitant]
     Dosage: 8 YEARS
     Route: 048
  9. ATENOLOL [Concomitant]
     Dosage: 8 YEARS
     Route: 048
  10. METFORMIN HCL [Concomitant]
     Dosage: 8 YEARS
     Route: 048

REACTIONS (6)
  - CHOLELITHIASIS [None]
  - COLON CANCER [None]
  - DEATH [None]
  - DRUG INEFFECTIVE [None]
  - HEPATIC NEOPLASM MALIGNANT [None]
  - RENAL CYST [None]
